FAERS Safety Report 4847225-9 (Version None)
Quarter: 2005Q4

REPORT INFORMATION
  Report Type: 
  Country: None (occurrence: None)
  Receive Date: 20051207
  Receipt Date: 20051129
  Transmission Date: 20060501
  Serious: Yes (Hospitalization, Other)
  Sender: FDA-Public Use
  Company Number: US-GLAXOSMITHKLINE-A0583873A

PATIENT
  Age: 61 Year
  Sex: Female

DRUGS (6)
  1. PAROXETINE HCL [Suspect]
     Indication: DEPRESSION
     Dosage: 40MG PER DAY
     Route: 048
     Dates: start: 20030901
  2. PAXIL [Suspect]
     Indication: DEPRESSION
     Dosage: 40MG PER DAY
     Route: 048
     Dates: start: 19981001
  3. INDERAL [Concomitant]
  4. HYDROCHLOROTHIAZIDE [Concomitant]
  5. SYNTHROID [Concomitant]
  6. VALIUM [Concomitant]

REACTIONS (4)
  - ANXIETY [None]
  - DRUG INEFFECTIVE [None]
  - OVERDOSE [None]
  - SUICIDE ATTEMPT [None]
